FAERS Safety Report 8154107-6 (Version None)
Quarter: 2012Q1

REPORT INFORMATION
  Report Type: 
  Country: None (occurrence: None)
  Receive Date: 20120221
  Receipt Date: 20120215
  Transmission Date: 20120608
  Serious: Yes (Disabling)
  Sender: FDA-Public Use
  Company Number: US-MERCK-1202USA02439

PATIENT
  Age: 71 Year
  Sex: Male

DRUGS (5)
  1. CANDESARTAN [Concomitant]
     Route: 065
  2. ASPIRIN [Concomitant]
     Route: 065
  3. NEXIUM [Concomitant]
     Route: 065
  4. DILTIAZEM HYDROCHLORIDE [Concomitant]
     Route: 065
  5. ZOCOR [Suspect]
     Route: 048
     Dates: start: 20020101, end: 20120101

REACTIONS (8)
  - WEIGHT DECREASED [None]
  - DECREASED APPETITE [None]
  - PAIN [None]
  - BODY MASS INDEX DECREASED [None]
  - MUSCLE ATROPHY [None]
  - BLOOD CREATINE PHOSPHOKINASE INCREASED [None]
  - ASTHENIA [None]
  - GASTRITIS [None]
